FAERS Safety Report 6501990-3 (Version None)
Quarter: 2009Q4

REPORT INFORMATION
  Report Type: 
  Country: None (occurrence: None)
  Receive Date: 20091216
  Receipt Date: 20091210
  Transmission Date: 20100525
  Serious: Yes (Death, Hospitalization, Other)
  Sender: FDA-Public Use
  Company Number: BR-ABBOTT-09P-020-0614501-00

PATIENT
  Sex: Female
  Weight: 32 kg

DRUGS (3)
  1. HUMIRA [Suspect]
     Indication: RHEUMATOID ARTHRITIS
     Route: 058
     Dates: start: 20070101, end: 20080101
  2. UNKNOWN [Concomitant]
     Indication: PAIN
     Route: 048
     Dates: start: 19990101
  3. VITAMINS [Concomitant]
     Indication: DRUG USE FOR UNKNOWN INDICATION

REACTIONS (5)
  - ARTHRALGIA [None]
  - DEPRESSION [None]
  - HAEMORRHAGE [None]
  - INTESTINAL HAEMORRHAGE [None]
  - WEIGHT DECREASED [None]
